FAERS Safety Report 17216927 (Version 2)
Quarter: 2020Q1

REPORT INFORMATION
  Report Type: Spontaneous
  Country: FR (occurrence: FR)
  Receive Date: 20191231
  Receipt Date: 20200110
  Transmission Date: 20200409
  Serious: Yes (Other)
  Sender: FDA-Public Use
  Company Number: FR-ABBVIE-19P-056-3213692-00

PATIENT
  Age: 52 Year
  Sex: Female
  Weight: 90 kg

DRUGS (4)
  1. ANDROCUR [Suspect]
     Active Substance: CYPROTERONE ACETATE
     Indication: ENDOMETRIOSIS
     Dosage: 50 MILLIGRAM, QD
     Route: 048
     Dates: start: 20041009, end: 20170912
  2. ENANTONE LP [Suspect]
     Active Substance: LEUPROLIDE ACETATE
     Indication: ENDOMETRIOSIS
     Dosage: UNK
     Route: 050
     Dates: start: 2003, end: 2004
  3. DECAPEPTYL (GONADORELIN) [Suspect]
     Active Substance: GONADORELIN
     Indication: ENDOMETRIOSIS
     Dosage: UNK
     Route: 048
     Dates: start: 2003, end: 2004
  4. LUTERAN [Suspect]
     Active Substance: CHLORMADINONE ACETATE
     Indication: ENDOMETRIOSIS
     Dosage: 10 MILLIGRAM, QD
     Route: 048
     Dates: start: 20041009, end: 20170912

REACTIONS (1)
  - Meningioma [Not Recovered/Not Resolved]

NARRATIVE: CASE EVENT DATE: 20170825
